FAERS Safety Report 4863648-6 (Version None)
Quarter: 2005Q4

REPORT INFORMATION
  Report Type: 
  Country: None (occurrence: None)
  Receive Date: 20051222
  Receipt Date: 20050608
  Transmission Date: 20060501
  Serious: No
  Sender: FDA-Public Use
  Company Number: US-GLAXOSMITHKLINE-A0561810A

PATIENT
  Age: 46 Year
  Sex: Male

DRUGS (7)
  1. FLONASE [Suspect]
     Dosage: 4PUFF TWICE PER DAY
     Route: 045
  2. LISINOPRIL [Concomitant]
  3. PRAVACHOL [Concomitant]
  4. HUMULIN 70/30 [Concomitant]
  5. GLIPIZIDE [Concomitant]
  6. METFORMIN [Concomitant]
  7. TYLENOL [Concomitant]

REACTIONS (3)
  - DRUG INEFFECTIVE [None]
  - OVERDOSE [None]
  - VOMITING [None]
